FAERS Safety Report 4289912-X (Version None)
Quarter: 2004Q1

REPORT INFORMATION
  Report Type: 
  Country: None (occurrence: None)
  Receive Date: 20040206
  Receipt Date: 20040130
  Transmission Date: 20041129
  Serious: Yes (Death, Other)
  Sender: FDA-Public Use
  Company Number: 200401527

PATIENT
  Age: 29 Year
  Sex: Female

DRUGS (2)
  1. PARACETAMOL              PRODUCT (PARACETAMOL) [Suspect]
     Dosage: PO
     Route: 048
     Dates: start: 20030601, end: 20030601
  2. ANTIDEPRESSANTS [Suspect]
     Dosage: PO
     Route: 048
     Dates: start: 20030601, end: 20030601

REACTIONS (3)
  - INTENTIONAL SELF-INJURY [None]
  - OVERDOSE [None]
  - POLYTRAUMATISM [None]
